FAERS Safety Report 8841330 (Version 1)
Quarter: 2012Q4

REPORT INFORMATION
  Report Type: 
  Country: US (occurrence: US)
  Receive Date: 20121015
  Receipt Date: 20121015
  Transmission Date: 20130627
  Serious: Yes (Hospitalization, Other)
  Sender: FDA-Public Use
  Company Number: US-PFIZER INC-2012254483

PATIENT
  Age: 71 Year
  Sex: Female
  Weight: 68.03 kg

DRUGS (4)
  1. PROCARDIA XL [Suspect]
     Indication: HYPERTENSION
     Dosage: 60 mg, 1x/day
     Route: 048
  2. NIFEDIPINE [Suspect]
     Indication: HYPERTENSION
     Dosage: 60 mg, 1x/day
     Route: 048
  3. XANAX [Concomitant]
     Dosage: UNK
  4. PRILOSEC [Concomitant]
     Indication: GASTROOESOPHAGEAL REFLUX DISEASE
     Dosage: UNK

REACTIONS (5)
  - Blood pressure inadequately controlled [Unknown]
  - Loss of consciousness [Unknown]
  - Breast disorder [Unknown]
  - Malaise [Unknown]
  - Influenza [Unknown]
